FAERS Safety Report 5219139-6 (Version None)
Quarter: 2007Q1

REPORT INFORMATION
  Report Type: 
  Country: None (occurrence: None)
  Receive Date: 20070124
  Receipt Date: 20070124
  Transmission Date: 20070707
  Serious: Yes (Other)
  Sender: FDA-Public Use
  Company Number: None

PATIENT
  Age: 55 Year
  Sex: Male
  Weight: 66.2252 kg

DRUGS (12)
  1. CODEINE INJ 60MG IM ONE TIME [Suspect]
     Indication: PAIN
     Dosage: IM ONE TIME, 60 MG
     Route: 030
     Dates: start: 20061011
  2. ASPIRIN [Concomitant]
  3. DEXTROMETHORPHAN/GUAIFENESIN ALC/F SYRUP [Concomitant]
  4. HYDROCHLOROTHIAZIDE [Concomitant]
  5. LAMIVUDINE + ZIDOVUDINE [Concomitant]
  6. LISINOPRIL [Concomitant]
  7. LORAZEPAM [Concomitant]
  8. NAPROXEN [Concomitant]
  9. NELFINAVIR [Concomitant]
  10. NICOTINE [Concomitant]
  11. PIPERACILLIN AND TAZOBACTAM [Concomitant]
  12. VANCOMYCIN HYDROCHLORIDE [Concomitant]

REACTIONS (1)
  - PRURITUS [None]
